FAERS Safety Report 8406540-2 (Version None)
Quarter: 2012Q2

REPORT INFORMATION
  Report Type: 
  Country: None (occurrence: None)
  Receive Date: 20120604
  Receipt Date: 20120529
  Transmission Date: 20120825
  Serious: Yes (Death, Life-Threatening)
  Sender: FDA-Public Use
  Company Number: US-BAYER-200825182NA

PATIENT
  Age: 43 Year
  Sex: Female
  Weight: 63 kg

DRUGS (15)
  1. SORAFENIB (RAF KINASE INHIBITOR) [Suspect]
     Indication: BREAST CANCER METASTATIC
     Dosage: 400 MG, BID
     Route: 048
     Dates: start: 20080513, end: 20080605
  2. LIDOCAINE [Concomitant]
  3. MULTI-VITAMIN [Concomitant]
  4. OXYCODONE HYDROCHLORIDE [Concomitant]
  5. GEMCITABINE [Suspect]
     Indication: BREAST CANCER METASTATIC
     Dosage: DAYS 1 AND 8 OF THE 21 DAY CYCLE. (1630 MG, 2 IN 1 CYCLICAL)
     Route: 042
     Dates: start: 20080513, end: 20080513
  6. AMBIEN [Concomitant]
  7. COMPAZINE [Concomitant]
  8. LACTULOSE [Concomitant]
  9. GEMCITABINE [Suspect]
     Dosage: DAYS 1 AND 8 OF THE 21 DAY CYCLE. (1630 MG, 2 IN 1 CYCLICAL)
     Route: 042
     Dates: start: 20080603, end: 20080603
  10. ZOMETA [Concomitant]
  11. GEMCITABINE [Suspect]
     Dosage: DAYS 1 AND 8 OF THE 21 DAY CYCLE. (1630 MG, 2 IN 1 CYCLICAL)
     Route: 042
     Dates: start: 20080520, end: 20080520
  12. LEXAPRO [Concomitant]
  13. ATENOLOL [Concomitant]
  14. OXYCONTIN [Concomitant]
  15. CIPROFLOXACIN [Concomitant]

REACTIONS (1)
  - CARDIAC ARREST [None]
